FAERS Safety Report 9854727 (Version 1)
Quarter: 2014Q1

REPORT INFORMATION
  Report Type: Spontaneous
  Country: CN (occurrence: CN)
  Receive Date: 20140130
  Receipt Date: 20140130
  Transmission Date: 20141002
  Serious: Yes (Other)
  Sender: FDA-Public Use
  Company Number: CN-ASTRAZENECA-2014SE05763

PATIENT
  Age: 67 Year
  Sex: Male

DRUGS (5)
  1. BRILINTA [Suspect]
     Indication: ACUTE CORONARY SYNDROME
     Route: 048
  2. ACEI [Concomitant]
  3. ASPIRIN [Concomitant]
  4. BETALOC [Concomitant]
  5. LIPITOR [Concomitant]

REACTIONS (2)
  - Anaphylactic shock [Recovered/Resolved]
  - Blood pressure decreased [Unknown]
